FAERS Safety Report 12074818 (Version 2)
Quarter: 2016Q1

REPORT INFORMATION
  Report Type: Spontaneous
  Country: KR (occurrence: KR)
  Receive Date: 20160212
  Receipt Date: 20160216
  Transmission Date: 20160526
  Serious: Yes (Other)
  Sender: FDA-Public Use
  Company Number: KR-SA-2016SA026772

PATIENT
  Age: 13 Year
  Sex: Female

DRUGS (3)
  1. OXALIPLATIN. [Suspect]
     Active Substance: OXALIPLATIN
     Indication: COLORECTAL ADENOCARCINOMA
     Dosage: DAY 1
     Route: 065
  2. FLUOROURACIL. [Suspect]
     Active Substance: FLUOROURACIL
     Indication: COLORECTAL ADENOCARCINOMA
     Dosage: DAYS 1,2
     Route: 065
  3. LEUCOVORIN. [Suspect]
     Active Substance: LEUCOVORIN
     Indication: COLORECTAL ADENOCARCINOMA
     Dosage: DAY 1,2
     Route: 065

REACTIONS (2)
  - Drug ineffective [Unknown]
  - Bone marrow failure [Unknown]
